FAERS Safety Report 6266002-8 (Version None)
Quarter: 2009Q3

REPORT INFORMATION
  Report Type: 
  Country: None (occurrence: None)
  Receive Date: 20090709
  Receipt Date: 20090709
  Transmission Date: 20100115
  Serious: Yes (Other)
  Sender: FDA-Public Use
  Company Number: None

PATIENT
  Sex: Female
  Weight: 99.7913 kg

DRUGS (1)
  1. PROCRIT [Suspect]
     Indication: ANAEMIA
     Dates: start: 20090603, end: 20090603

REACTIONS (4)
  - ABASIA [None]
  - BEDRIDDEN [None]
  - PAIN IN EXTREMITY [None]
  - REACTION TO DRUG EXCIPIENTS [None]
